FAERS Safety Report 24106502 (Version 3)
Quarter: 2024Q3

REPORT INFORMATION
  Report Type: Spontaneous
  Country: US (occurrence: US)
  Receive Date: 20240717
  Receipt Date: 20240722
  Transmission Date: 20241017
  Serious: Yes (Other)
  Sender: PFIZER
  Company Number: US-PFIZER INC-202400215309

PATIENT
  Age: 68 Year
  Sex: Female

DRUGS (2)
  1. CIBINQO [Suspect]
     Active Substance: ABROCITINIB
     Dosage: 100 MG
  2. ALBUTEROL [Concomitant]
     Active Substance: ALBUTEROL
     Dosage: UNK

REACTIONS (12)
  - Systemic lupus erythematosus [Unknown]
  - General physical health deterioration [Unknown]
  - Hypersensitivity [Unknown]
  - Pruritus [Unknown]
  - Nausea [Unknown]
  - Wound [Unknown]
  - Rash [Unknown]
  - Skin disorder [Unknown]
  - Illness [Unknown]
  - Aphasia [Unknown]
  - Vomiting [Unknown]
  - Oropharyngeal pain [Unknown]
